FAERS Safety Report 7733623-2 (Version None)
Quarter: 2011Q3

REPORT INFORMATION
  Report Type: 
  Country: None (occurrence: None)
  Receive Date: 20110902
  Receipt Date: 20110902
  Transmission Date: 20111222
  Serious: Yes (Other)
  Sender: FDA-Public Use
  Company Number: None

PATIENT
  Age: 78 Year
  Sex: Female
  Weight: 50.8029 kg

DRUGS (1)
  1. ACTONEL [Suspect]
     Indication: OSTEOPOROSIS
     Dosage: 1 TABLET ONLY MONTHLY MOUTH
     Route: 048
     Dates: start: 20110520

REACTIONS (4)
  - WHEEZING [None]
  - BONE PAIN [None]
  - MYALGIA [None]
  - DYSPNOEA EXERTIONAL [None]
